FAERS Safety Report 11215798 (Version 1)
Quarter: 2015Q2

REPORT INFORMATION
  Report Type: Spontaneous
  Country: US (occurrence: None)
  Receive Date: 20150623
  Receipt Date: 20150623
  Transmission Date: 20150821
  Serious: Yes (Hospitalization)
  Sender: FDA-Public Use
  Company Number: None

PATIENT
  Age: 66 Year
  Sex: Male
  Weight: 105.2 kg

DRUGS (1)
  1. SULFAMETHOXAZOLE/TRIMETHOPRIM [Suspect]
     Active Substance: SULFAMETHOXAZOLE\TRIMETHOPRIM
     Route: 048
     Dates: start: 20150313, end: 20150326

REACTIONS (4)
  - Hyperkalaemia [None]
  - Diarrhoea [None]
  - Acute kidney injury [None]
  - Haemodialysis [None]

NARRATIVE: CASE EVENT DATE: 20150326
